FAERS Safety Report 4914862-2 (Version None)
Quarter: 2006Q1

REPORT INFORMATION
  Report Type: 
  Country: None (occurrence: None)
  Receive Date: 20060217
  Receipt Date: 20060208
  Transmission Date: 20060701
  Serious: Yes (Death)
  Sender: FDA-Public Use
  Company Number: US-JNJFOC-20050903209

PATIENT
  Sex: Male

DRUGS (3)
  1. DURAGESIC-100 [Suspect]
     Route: 062
  2. PERCOCET [Concomitant]
     Route: 048
  3. PERCOCET [Concomitant]
     Dosage: 1 TO 2 EVERY 4 TO 6 HOURS
     Route: 048

REACTIONS (6)
  - BODY TEMPERATURE INCREASED [None]
  - CARDIO-RESPIRATORY ARREST [None]
  - MOOD ALTERED [None]
  - OFF LABEL USE [None]
  - RESPIRATORY DEPRESSION [None]
  - TREMOR [None]
